FAERS Safety Report 7786271-2 (Version None)
Quarter: 2011Q3

REPORT INFORMATION
  Report Type: 
  Country: None (occurrence: None)
  Receive Date: 20110928
  Receipt Date: 20110928
  Transmission Date: 20111222
  Serious: Yes (Life-Threatening)
  Sender: FDA-Public Use
  Company Number: None

PATIENT
  Age: 53 Year
  Sex: Male
  Weight: 87.5442 kg

DRUGS (1)
  1. BUTRANS [Suspect]
     Dosage: 1 PATCH 2 1/2 DAYS

REACTIONS (10)
  - TOXICITY TO VARIOUS AGENTS [None]
  - OEDEMA PERIPHERAL [None]
  - FURUNCLE [None]
  - URTICARIA [None]
  - CONDITION AGGRAVATED [None]
  - FEELING COLD [None]
  - PAIN [None]
  - SKIN ODOUR ABNORMAL [None]
  - HEADACHE [None]
  - THINKING ABNORMAL [None]
